FAERS Safety Report 7450894-0 (Version None)
Quarter: 2011Q2

REPORT INFORMATION
  Report Type: 
  Country: None (occurrence: None)
  Receive Date: 20110502
  Receipt Date: 20110422
  Transmission Date: 20111010
  Serious: Yes (Death, Other)
  Sender: FDA-Public Use
  Company Number: US-CELGENEUS-163-21880-11043112

PATIENT
  Age: 67 Year
  Sex: Female

DRUGS (10)
  1. REVLIMID [Suspect]
     Indication: MULTIPLE MYELOMA
     Dosage: 10 MILLIGRAM
     Route: 048
     Dates: start: 20060601, end: 20080101
  2. REVLIMID [Suspect]
     Dosage: 15MG/10MG ALTERNATING
     Route: 048
     Dates: start: 20090526
  3. VELCADE [Concomitant]
     Indication: MULTIPLE MYELOMA
     Route: 065
     Dates: start: 20090929, end: 20100118
  4. LEVOTHROID [Concomitant]
     Route: 065
  5. REVLIMID [Suspect]
     Dosage: 5 MILLIGRAM
     Route: 048
     Dates: start: 20091101
  6. CITALOPRAM [Concomitant]
     Route: 065
  7. REVLIMID [Suspect]
     Dosage: 10 MILLIGRAM
     Route: 048
     Dates: start: 20091230, end: 20100118
  8. REVLIMID [Suspect]
     Dosage: 15 MILLIGRAM
     Route: 048
     Dates: start: 20080818
  9. REVLIMID [Suspect]
     Dosage: 10 MILLIGRAM
     Route: 048
     Dates: start: 20091001
  10. DEXAMETHASONE [Concomitant]
     Indication: MULTIPLE MYELOMA
     Dosage: 20 MILLIGRAM
     Route: 048
     Dates: start: 20060601

REACTIONS (6)
  - DEATH [None]
  - DISEASE PROGRESSION [None]
  - NEUROPATHY PERIPHERAL [None]
  - URINE ELECTROPHORESIS ABNORMAL [None]
  - RENAL IMPAIRMENT [None]
  - FULL BLOOD COUNT DECREASED [None]
